FAERS Safety Report 17720501 (Version 1)
Quarter: 2020Q2

REPORT INFORMATION
  Report Type: Report from Study
  Country: US (occurrence: US)
  Receive Date: 20200428
  Receipt Date: 20200428
  Transmission Date: 20200714
  Serious: No
  Sender: FDA-Public Use
  Company Number: NVSC2020US114510

PATIENT
  Sex: Male

DRUGS (1)
  1. COSENTYX [Suspect]
     Active Substance: SECUKINUMAB
     Indication: PSORIATIC ARTHROPATHY
     Dosage: 300 MG, OTHER (300MG (2 PENS) SUBCUTANEOUSLY ONCE WEEKLY FOR 5 WEEKS (ON WEEK 0,1,2,3,4) FOR LOADING
     Route: 058

REACTIONS (1)
  - Limb injury [Unknown]
